FAERS Safety Report 15156535 (Version 1)
Quarter: 2018Q3

REPORT INFORMATION
  Report Type: Spontaneous
  Country: US (occurrence: US)
  Receive Date: 20180717
  Receipt Date: 20180717
  Transmission Date: 20181010
  Serious: No
  Sender: FDA-Public Use
  Company Number: US-AMGEN-USASP2018094877

PATIENT
  Age: 54 Year
  Sex: Female

DRUGS (15)
  1. BENZTROPINE. [Concomitant]
     Active Substance: BENZTROPINE
     Dosage: 2 MG, UNK
  2. RIPTAN [Concomitant]
     Dosage: 100 MG, UNK
     Route: 065
  3. WELLBUTRIN [Concomitant]
     Active Substance: BUPROPION HYDROCHLORIDE
     Dosage: 300 MG, UNK
  4. ENBREL [Suspect]
     Active Substance: ETANERCEPT
     Indication: RHEUMATOID ARTHRITIS
     Dosage: 50 MG, QWK
     Route: 058
  5. LINZESS [Concomitant]
     Active Substance: LINACLOTIDE
     Dosage: 290 MUG, UNK
  6. ARIPIPRAZOLE. [Concomitant]
     Active Substance: ARIPIPRAZOLE
     Dosage: 30 MG, UNK
  7. COLACE [Concomitant]
     Active Substance: DOCUSATE SODIUM
     Dosage: 100 MG, UNK
  8. METHYLPRED [Concomitant]
     Active Substance: METHYLPREDNISOLONE
     Dosage: 4 MG, UNK
  9. AMLODIPINE [Concomitant]
     Active Substance: AMLODIPINE BESYLATE
     Dosage: 10 MG, UNK
  10. BACLOFEN. [Concomitant]
     Active Substance: BACLOFEN
     Dosage: 10 MG, UNK
  11. BUSPIRONE [Concomitant]
     Active Substance: BUSPIRONE HYDROCHLORIDE
     Dosage: 30 MG, UNK
  12. CEFDINIR. [Concomitant]
     Active Substance: CEFDINIR
     Dosage: UNK
  13. LEVOFLOXACIN. [Concomitant]
     Active Substance: LEVOFLOXACIN
     Dosage: 750 MG, UNK
  14. AMBIEN [Concomitant]
     Active Substance: ZOLPIDEM TARTRATE
     Dosage: 10 MG, UNK
  15. BUTALBITAL [Concomitant]
     Active Substance: BUTALBITAL
     Dosage: UNK

REACTIONS (1)
  - Chronic obstructive pulmonary disease [Not Recovered/Not Resolved]
